FAERS Safety Report 6667958-1 (Version None)
Quarter: 2010Q2

REPORT INFORMATION
  Report Type: 
  Country: None (occurrence: None)
  Receive Date: 20100405
  Receipt Date: 20100401
  Transmission Date: 20101027
  Serious: Yes (Other)
  Sender: FDA-Public Use
  Company Number: US-BAXTER-2010BH006933

PATIENT
  Age: 27 Year
  Sex: Female

DRUGS (6)
  1. SODIUM CHLORIDE 0.9% IN PLASTIC CONTAINER [Suspect]
     Indication: DRUG USE FOR UNKNOWN INDICATION
     Route: 013
     Dates: start: 20100201, end: 20100201
  2. MEROPENEM [Suspect]
     Indication: DRUG USE FOR UNKNOWN INDICATION
     Route: 013
     Dates: start: 20100201, end: 20100201
  3. CIPROFLOXACIN IN DEXTROSE 5% [Suspect]
     Indication: DRUG USE FOR UNKNOWN INDICATION
     Route: 013
     Dates: start: 20100201, end: 20100201
  4. FENTANYL CITRATE [Suspect]
     Indication: DRUG USE FOR UNKNOWN INDICATION
     Route: 065
     Dates: start: 20100201
  5. MIDAZOLAM HYDROCHLORIDE [Suspect]
     Indication: DRUG USE FOR UNKNOWN INDICATION
     Route: 065
     Dates: start: 20100201
  6. INSULIN [Suspect]
     Indication: DRUG USE FOR UNKNOWN INDICATION
     Route: 065
     Dates: start: 20100201

REACTIONS (4)
  - DEVICE MALFUNCTION [None]
  - INCORRECT ROUTE OF DRUG ADMINISTRATION [None]
  - PULSE ABSENT [None]
  - SKIN DISCOLOURATION [None]
